FAERS Safety Report 9110820 (Version 1)
Quarter: 2013Q1

REPORT INFORMATION
  Report Type: Spontaneous
  Country: US (occurrence: US)
  Receive Date: 20130219
  Receipt Date: 20130219
  Transmission Date: 20140127
  Serious: No
  Sender: FDA-Public Use
  Company Number: US-BRISTOL-MYERS SQUIBB COMPANY-16560666

PATIENT
  Age: 47 Year
  Sex: Female

DRUGS (1)
  1. ORENCIA [Suspect]
     Dosage: NO OF INJ:2
     Dates: start: 20120428

REACTIONS (7)
  - Flushing [Not Recovered/Not Resolved]
  - Palpitations [Unknown]
  - Paraesthesia [Unknown]
  - Bronchitis [Unknown]
  - Chest pain [Unknown]
  - Tremor [Unknown]
  - Malaise [Unknown]
